FAERS Safety Report 17945705 (Version 1)
Quarter: 2020Q2

REPORT INFORMATION
  Report Type: Spontaneous
  Country: IT (occurrence: IT)
  Receive Date: 20200626
  Receipt Date: 20200626
  Transmission Date: 20200714
  Serious: Yes (Death, Congenital Anomaly)
  Sender: FDA-Public Use
  Company Number: IT-ROCHE-2627669

PATIENT
  Age: 55 Year
  Sex: Female

DRUGS (5)
  1. LIPOSOMAL DOXORUBICIN HYDROCHLORIDE [Suspect]
     Active Substance: DOXORUBICIN HYDROCHLORIDE
     Indication: OVARIAN CANCER
     Dosage: STOPPED AFTER 2 CYCLES
     Route: 050
     Dates: start: 201808
  2. BEVACIZUMAB. [Suspect]
     Active Substance: BEVACIZUMAB
     Indication: OVARIAN CANCER
     Dosage: A TOTAL OF 22 CYCLES?MOST RECENT DOSE: JAN/2017
     Route: 065
     Dates: start: 201602
  3. CARBOPLATIN. [Suspect]
     Active Substance: CARBOPLATIN
     Indication: OVARIAN CANCER
     Dosage: AUC 4 (ON DAY 1); SIX CYCLES TOTAL?MOST RECENT DOSE: /JUN/2016
     Route: 065
     Dates: start: 201602
  4. GEMCITABINE. [Suspect]
     Active Substance: GEMCITABINE
     Indication: OVARIAN CANCER
     Dosage: ON DAYS 1 AND 8; SIX CYCLES TOTAL?MOST RECNT DOSE: /JUN/2016
     Route: 065
     Dates: start: 201602
  5. OLAPARIB. [Suspect]
     Active Substance: OLAPARIB
     Indication: OVARIAN CANCER
     Dosage: MOST RECENT DOSE: /APR/2018
     Route: 065
     Dates: start: 201707

REACTIONS (3)
  - Drug resistance [Unknown]
  - BRCA2 gene mutation [Unknown]
  - Infusion related reaction [Unknown]
